FAERS Safety Report 20625590 (Version 1)
Quarter: 2022Q1

REPORT INFORMATION
  Report Type: Spontaneous
  Country: US (occurrence: None)
  Receive Date: 20220323
  Receipt Date: 20220323
  Transmission Date: 20220423
  Serious: No
  Sender: FDA-Public Use
  Company Number: US-ROCHE-2908101

PATIENT
  Sex: Male
  Weight: 101.24 kg

DRUGS (1)
  1. ERIVEDGE [Suspect]
     Active Substance: VISMODEGIB
     Indication: Basal cell carcinoma
     Route: 048
     Dates: start: 2011, end: 20210914

REACTIONS (3)
  - Colitis [Unknown]
  - Diarrhoea [Unknown]
  - Inflammation [Unknown]
